FAERS Safety Report 7933592-6 (Version None)
Quarter: 2011Q4

REPORT INFORMATION
  Report Type: 
  Country: None (occurrence: None)
  Receive Date: 20111118
  Receipt Date: 20111103
  Transmission Date: 20120403
  Serious: Yes (Hospitalization)
  Sender: FDA-Public Use
  Company Number: 2011SP044952

PATIENT
  Age: 51 Year
  Sex: Male

DRUGS (6)
  1. FUROSEMIDE [Concomitant]
  2. PEGINTERFERON ALFA-2B [Suspect]
     Indication: HEPATITIS C
     Dosage: 80 MG; QW; SC
     Route: 058
     Dates: start: 20110705, end: 20110914
  3. BOCEPREVIR (SCH-503034) [Suspect]
     Indication: HEPATITIS C
     Dosage: 800 MG; TID
     Dates: start: 20110705, end: 20110914
  4. REBETOL [Suspect]
     Indication: HEPATITIS C
     Dosage: 1000 MG; QD; PO
     Route: 048
     Dates: start: 20110705, end: 20110914
  5. SPIRONOLACTONE [Concomitant]
  6. FOLSAN [Concomitant]

REACTIONS (2)
  - HEPATIC CIRRHOSIS [None]
  - PORTAL VEIN THROMBOSIS [None]
